FAERS Safety Report 21533458 (Version 1)
Quarter: 2022Q4

REPORT INFORMATION
  Report Type: Report from Study
  Country: CA (occurrence: CA)
  Receive Date: 20221101
  Receipt Date: 20221101
  Transmission Date: 20230113
  Serious: Yes (Other)
  Sender: FDA-Public Use
  Company Number: None

PATIENT
  Age: 76 Year
  Sex: Male

DRUGS (8)
  1. HYDROCHLOROTHIAZIDE [Suspect]
     Active Substance: HYDROCHLOROTHIAZIDE
     Indication: Hypertension
     Dosage: 1 EVERY 1 DAYS
  2. METHOTREXATE [Suspect]
     Active Substance: METHOTREXATE
     Indication: Product used for unknown indication
  3. RAMIPRIL [Suspect]
     Active Substance: RAMIPRIL
     Indication: Hypertension
     Dosage: 2 EVERY 1 DAYS
  4. CYCLOSPORINE [Suspect]
     Active Substance: CYCLOSPORINE
     Indication: Product used for unknown indication
  5. SECUKINUMAB [Suspect]
     Active Substance: SECUKINUMAB
     Indication: Psoriasis
     Route: 058
  6. BETAMETHASONE\CALCIPOTRIENE [Concomitant]
     Active Substance: BETAMETHASONE\CALCIPOTRIENE
     Route: 065
  7. COAL TAR [Concomitant]
     Active Substance: COAL TAR
     Route: 065
  8. TACROLIMUS [Concomitant]
     Active Substance: TACROLIMUS
     Route: 065

REACTIONS (9)
  - Device malfunction [Unknown]
  - Drug ineffective [Unknown]
  - Drug intolerance [Unknown]
  - Hypertension [Not Recovered/Not Resolved]
  - Incorrect dose administered [Unknown]
  - Product dose omission issue [Unknown]
  - Psoriasis [Not Recovered/Not Resolved]
  - Skin plaque [Not Recovered/Not Resolved]
  - Symptom recurrence [Unknown]
